FAERS Safety Report 19294947 (Version 1)
Quarter: 2021Q2

REPORT INFORMATION
  Report Type: Spontaneous
  Country: NL (occurrence: NL)
  Receive Date: 20210524
  Receipt Date: 20210524
  Transmission Date: 20210717
  Serious: Yes (Hospitalization, Disabling)
  Sender: FDA-Public Use
  Company Number: NL-TEVA-2021-NL-1914028

PATIENT
  Age: 74 Year
  Sex: Female
  Weight: 66 kg

DRUGS (3)
  1. NATRIUMTHIOSULFAAT / BRAND NAME NOT SPECIFIED [Concomitant]
     Dosage: 200 ML OF HYPERTONIC THIOSULFATE SOLUTION (9 GRAMS / M2) ADMINISTERED OVER 20 MINUTES. FOLLOWED BY 1
  2. CISPLATINE INFUUS / BRAND NAME NOT SPECIFIED [Suspect]
     Active Substance: CISPLATIN
     Indication: HYPERTHERMIC CHEMOTHERAPY
     Dosage: 100 MG / M2 WITH A MAXIMUM OF 200 MG:THERAPY END DATE :ASKU
     Dates: start: 20201127
  3. CISPLATINE INFUUS / BRAND NAME NOT SPECIFIED [Suspect]
     Active Substance: CISPLATIN
     Indication: CYTOREDUCTIVE SURGERY

REACTIONS (2)
  - Poor peripheral circulation [Not Recovered/Not Resolved]
  - Skin discolouration [Not Recovered/Not Resolved]

NARRATIVE: CASE EVENT DATE: 20201127
